FAERS Safety Report 7336204-8 (Version None)
Quarter: 2011Q1

REPORT INFORMATION
  Report Type: 
  Country: None (occurrence: None)
  Receive Date: 20110307
  Receipt Date: 20110301
  Transmission Date: 20110831
  Serious: Yes (Disabling)
  Sender: FDA-Public Use
  Company Number: CA-PFIZER INC-2011018892

PATIENT
  Age: 61 Year
  Sex: Male

DRUGS (5)
  1. ATENOLOL [Concomitant]
     Dosage: 25 MG, 1X/DAY
  2. METFORMIN [Concomitant]
     Dosage: 250 MG, 3X/DAY
  3. CITALOPRAM [Concomitant]
     Dosage: 30 MG, 1X/DAY
  4. ATORVASTATIN CALCIUM [Interacting]
     Dosage: 60 MG, 1X/DAY
     Dates: start: 20101201
  5. LIPITOR [Suspect]
     Dosage: 60 MG, 1X/DAY
     Dates: start: 20101201, end: 20101201

REACTIONS (5)
  - DARK CIRCLES UNDER EYES [None]
  - EYELID OEDEMA [None]
  - MUSCULOSKELETAL STIFFNESS [None]
  - PAIN [None]
  - FOOD INTERACTION [None]
